FAERS Safety Report 7190123-9 (Version None)
Quarter: 2010Q4

REPORT INFORMATION
  Report Type: 
  Country: None (occurrence: None)
  Receive Date: 20101210
  Receipt Date: 20101129
  Transmission Date: 20110411
  Serious: Yes (Hospitalization)
  Sender: FDA-Public Use
  Company Number: 2010US004827

PATIENT
  Age: 44 Year
  Sex: Female
  Weight: 131 kg

DRUGS (2)
  1. PROGRAF [Suspect]
     Indication: RENAL TRANSPLANT
     Dosage: 5 MG, BID, ORAL
     Route: 048
  2. CELLCEPT [Concomitant]

REACTIONS (1)
  - FOOT AMPUTATION [None]
